FAERS Safety Report 10236032 (Version 1)
Quarter: 2014Q2

REPORT INFORMATION
  Report Type: Spontaneous
  Country: GB (occurrence: GB)
  Receive Date: 20140613
  Receipt Date: 20140613
  Transmission Date: 20141212
  Serious: Yes (Other)
  Sender: FDA-Public Use
  Company Number: GB-BAYER-2014-083827

PATIENT
  Age: 42 Year
  Sex: Female
  Weight: 83 kg

DRUGS (2)
  1. MIRENA [Suspect]
     Indication: CONTRACEPTION
     Dosage: 20 MCG/24HR, CONT
     Route: 015
     Dates: start: 20120912
  2. CITALOPRAM [Concomitant]

REACTIONS (4)
  - Menorrhagia [Not Recovered/Not Resolved]
  - Depression [Unknown]
  - Hypercoagulation [Not Recovered/Not Resolved]
  - Anxiety [Unknown]
